FAERS Safety Report 5473587-8 (Version None)
Quarter: 2007Q4

REPORT INFORMATION
  Report Type: 
  Country: None (occurrence: None)
  Receive Date: 20071001
  Receipt Date: 20070521
  Transmission Date: 20080405
  Serious: No
  Sender: FDA-Public Use
  Company Number: US-ASTRAZENECA-2007UW12609

PATIENT
  Age: 70 Year
  Sex: Female
  Weight: 78.9 kg

DRUGS (2)
  1. ARIMIDEX [Suspect]
     Indication: BREAST CANCER
  2. BLOOD PRESSURE MEDICATION [Concomitant]
     Dates: start: 20070401

REACTIONS (3)
  - ARTHRALGIA [None]
  - COUGH [None]
  - PHARYNGOLARYNGEAL PAIN [None]
